FAERS Safety Report 15272477 (Version 3)
Quarter: 2020Q4

REPORT INFORMATION
  Report Type: Report from Study
  Country: FR (occurrence: FR)
  Receive Date: 20180813
  Receipt Date: 20201203
  Transmission Date: 20210113
  Serious: Yes (Death, Life-Threatening, Hospitalization)
  Sender: FDA-Public Use
  Company Number: FR-PFIZER INC-2017461134

PATIENT
  Age: 71 Year
  Sex: Male
  Weight: 56 kg

DRUGS (10)
  1. AXITINIB [Suspect]
     Active Substance: AXITINIB
     Indication: METASTATIC RENAL CELL CARCINOMA
     Dosage: 5 MG, 2X/DAY
     Route: 048
     Dates: start: 20170707, end: 20170907
  2. LERCANIDIPINE [Concomitant]
     Active Substance: LERCANIDIPINE
     Dosage: 1 MG, UNK
     Dates: start: 20170620
  3. NEO-MERCAZOLE [Concomitant]
     Active Substance: CARBIMAZOLE
     Dosage: 1 MG, UNK
     Dates: start: 20170620
  4. PEMBROLIZUMAB. [Suspect]
     Active Substance: PEMBROLIZUMAB
     Indication: RENAL CELL CARCINOMA
     Dosage: 200 MG, EVERY 3 WEEKS (VOLUME OF INFUSION: 100 ML)
     Route: 042
     Dates: start: 20170707, end: 20170908
  5. TEMESTA [Concomitant]
     Dosage: 1 MG, UNK
     Dates: start: 20170704
  6. DOLIPRANE [Concomitant]
     Active Substance: ACETAMINOPHEN
     Dosage: 1 G, UNK
     Dates: start: 20171016, end: 20171019
  7. PEMBROLIZUMAB. [Suspect]
     Active Substance: PEMBROLIZUMAB
     Dosage: 200 MG, EVERY 3 WEEKS (CYCLE 5)
     Route: 042
     Dates: start: 20170929, end: 20170929
  8. AXITINIB [Suspect]
     Active Substance: AXITINIB
     Dosage: 14 MG, DAILY
     Route: 048
     Dates: start: 20170908, end: 20170928
  9. AUGMENTIN [Concomitant]
     Active Substance: AMOXICILLIN\CLAVULANATE POTASSIUM
     Dosage: 1 G, UNK
     Dates: start: 20171016, end: 20171019
  10. AXITINIB [Suspect]
     Active Substance: AXITINIB
     Dosage: 14 MG, DAILY
     Route: 048
     Dates: start: 20170929, end: 20171018

REACTIONS (2)
  - Hepatocellular injury [Not Recovered/Not Resolved]
  - Necrotising fasciitis [Fatal]

NARRATIVE: CASE EVENT DATE: 20171018
